FAERS Safety Report 8231311-X (Version None)
Quarter: 2012Q1

REPORT INFORMATION
  Report Type: 
  Country: None (occurrence: None)
  Receive Date: 20120323
  Receipt Date: 20120319
  Transmission Date: 20120608
  Serious: Yes (Hospitalization)
  Sender: FDA-Public Use
  Company Number: FR-PFIZER INC-2012070535

PATIENT
  Age: 16 Year
  Sex: Female

DRUGS (13)
  1. CYTARABINE [Suspect]
     Indication: T-CELL TYPE ACUTE LEUKAEMIA
     Dosage: 30 MG, SINGLE
     Route: 037
     Dates: start: 20120121, end: 20120121
  2. METHOTREXATE [Suspect]
     Dosage: 8220 MG, SINGLE
     Route: 041
     Dates: start: 20120120, end: 20120120
  3. FUROSEMIDE [Concomitant]
     Dosage: 120 MG, 1X/DAY
     Dates: start: 20120120, end: 20120124
  4. CALCIUM LEVOFOLINATE [Concomitant]
     Indication: T-CELL TYPE ACUTE LEUKAEMIA
     Dosage: 12.5 MG, 1X/DAY
     Dates: start: 20120121, end: 20120122
  5. METHOTREXATE [Suspect]
     Indication: T-CELL TYPE ACUTE LEUKAEMIA
     Dosage: 12 MG, SINGLE
     Route: 037
     Dates: start: 20120121, end: 20120121
  6. CERUBIDINE [Suspect]
     Indication: T-CELL TYPE ACUTE LEUKAEMIA
     Dosage: 57 MG, 1X/DAY
     Route: 042
     Dates: start: 20120124, end: 20120124
  7. HYDROCORTISONE [Suspect]
     Dosage: 15 MG, SINGLE
     Route: 037
     Dates: start: 20120126, end: 20120126
  8. MESNA [Suspect]
     Indication: T-CELL TYPE ACUTE LEUKAEMIA
     Dosage: 330 MG, 1X/DAY
     Route: 042
     Dates: start: 20120120, end: 20120124
  9. CYTARABINE [Suspect]
     Dosage: 30 MG, SINGLE
     Route: 037
     Dates: start: 20120126, end: 20120126
  10. HYDROCORTISONE [Suspect]
     Indication: T-CELL TYPE ACUTE LEUKAEMIA
     Dosage: 15 MG, SINGLE
     Route: 037
     Dates: start: 20120121, end: 20120121
  11. METHOTREXATE [Suspect]
     Dosage: 12 MG, 1X/DAY
     Route: 037
     Dates: start: 20120126, end: 20120126
  12. IFOSFAMIDE [Suspect]
     Indication: T-CELL TYPE ACUTE LEUKAEMIA
     Dosage: 656 MG, 1X/DAY
     Route: 042
     Dates: start: 20120120, end: 20120124
  13. ELDISINE [Suspect]
     Dosage: 4 MG, SINGLE
     Route: 042
     Dates: start: 20120120, end: 20120120

REACTIONS (2)
  - MUCOSAL INFLAMMATION [None]
  - DERMATITIS BULLOUS [None]
